FAERS Safety Report 9797413 (Version 1)
Quarter: 2014Q1

REPORT INFORMATION
  Report Type: Spontaneous
  Country: IN (occurrence: IN)
  Receive Date: 20140106
  Receipt Date: 20140106
  Transmission Date: 20141002
  Serious: Yes (Death, Hospitalization, Other)
  Sender: FDA-Public Use
  Company Number: PHHY2013IN153431

PATIENT
  Age: 17 Year
  Sex: Female

DRUGS (1)
  1. FERROUS SULFATE [Suspect]
     Dosage: 300 DF, UNK
     Route: 048

REACTIONS (13)
  - Toxicity to various agents [Fatal]
  - Melaena [Unknown]
  - Acute hepatic failure [Unknown]
  - Blood pressure immeasurable [Unknown]
  - Oliguria [Unknown]
  - Cardiac arrest [Unknown]
  - Somnolence [Unknown]
  - Vomiting [Unknown]
  - Haematemesis [Unknown]
  - Abdominal pain [Unknown]
  - Circulatory collapse [Unknown]
  - Hypotension [Unknown]
  - Intentional overdose [Unknown]
